FAERS Safety Report 25632401 (Version 2)
Quarter: 2025Q3

REPORT INFORMATION
  Report Type: Spontaneous
  Country: US (occurrence: US)
  Receive Date: 20250801
  Receipt Date: 20250826
  Transmission Date: 20251021
  Serious: No
  Sender: VERTEX
  Company Number: US-VERTEX PHARMACEUTICALS DOOEL SKOPJ-2025-012402

PATIENT
  Age: 20 Year

DRUGS (1)
  1. TRIKAFTA [Suspect]
     Active Substance: ELEXACAFTOR\IVACAFTOR\TEZACAFTOR
     Indication: Cystic fibrosis
     Route: 048

REACTIONS (6)
  - Weight increased [Unknown]
  - Illness anxiety disorder [Not Recovered/Not Resolved]
  - Derealisation [Unknown]
  - Fatigue [Unknown]
  - Mental disorder [Unknown]
  - Dyspepsia [Recovering/Resolving]
